FAERS Safety Report 5046121-4 (Version None)
Quarter: 2006Q3

REPORT INFORMATION
  Report Type: 
  Country: None (occurrence: None)
  Receive Date: 20060707
  Receipt Date: 20060707
  Transmission Date: 20061208
  Serious: Yes (Hospitalization)
  Sender: FDA-Public Use
  Company Number: None

PATIENT
  Sex: Male
  Weight: 93 kg

DRUGS (2)
  1. CISPLATIN [Suspect]
     Dosage: 75MG/M2 PER IV TOTAL 158MG
  2. TAXOTERE [Suspect]
     Dosage: 75MG/M2 IV TOTAL 158 MG

REACTIONS (1)
  - FEBRILE NEUTROPENIA [None]
